FAERS Safety Report 6018676-4 (Version None)
Quarter: 2008Q4

REPORT INFORMATION
  Report Type: 
  Country: None (occurrence: None)
  Receive Date: 20081222
  Receipt Date: 20081209
  Transmission Date: 20090506
  Serious: Yes (Hospitalization)
  Sender: FDA-Public Use
  Company Number: 2008PV037224

PATIENT
  Age: 56 Year
  Sex: Female

DRUGS (10)
  1. SYMLIN [Suspect]
     Indication: TYPE 1 DIABETES MELLITUS
     Dosage: 60 MCG; TID; SC
     Route: 057
     Dates: start: 20081126, end: 20081201
  2. NOVOLOG [Concomitant]
  3. LANTUS [Concomitant]
  4. FORTAMET [Concomitant]
  5. COUMADIN [Concomitant]
  6. LOPRESSOR [Concomitant]
  7. LISINOPRIL [Concomitant]
  8. NEXIUM [Concomitant]
  9. FOLIC ACID [Concomitant]
  10. IRON [Concomitant]

REACTIONS (3)
  - GROIN PAIN [None]
  - INJECTION SITE HAEMORRHAGE [None]
  - THROMBOSIS [None]
